FAERS Safety Report 22228878 (Version 2)
Quarter: 2023Q2

REPORT INFORMATION
  Report Type: Spontaneous
  Country: US (occurrence: US)
  Receive Date: 20230419
  Receipt Date: 20230518
  Transmission Date: 20230721
  Serious: Yes (Hospitalization)
  Sender: FDA-Public Use
  Company Number: US-BRISTOL-MYERS SQUIBB COMPANY-2023-054681

PATIENT
  Age: 58 Year
  Sex: Female
  Weight: 97.07 kg

DRUGS (1)
  1. POMALYST [Suspect]
     Active Substance: POMALIDOMIDE
     Indication: Plasma cell myeloma
     Dosage: 3WKSON,1WKOFF, 21D ON 7D OFF
     Route: 048
     Dates: start: 20230301

REACTIONS (3)
  - Pain in extremity [Unknown]
  - Pyrexia [Unknown]
  - Platelet count decreased [Unknown]
